FAERS Safety Report 9804944 (Version 2)
Quarter: 2014Q1

REPORT INFORMATION
  Report Type: Spontaneous
  Country: GB (occurrence: GB)
  Receive Date: 20140109
  Receipt Date: 20140109
  Transmission Date: 20141002
  Serious: Yes (Other)
  Sender: FDA-Public Use
  Company Number: GB-ROCHE-1323863

PATIENT
  Age: 42 Year
  Sex: Male

DRUGS (8)
  1. PEGASYS [Suspect]
     Indication: HEPATITIS C
     Route: 058
     Dates: start: 20131007
  2. INCIVO [Suspect]
     Indication: HEPATITIS C
     Route: 048
     Dates: start: 20131007, end: 20131215
  3. TRIBAVIRIN [Suspect]
     Indication: HEPATITIS C
     Route: 048
     Dates: start: 20131007
  4. DOSULEPIN [Concomitant]
  5. METOCLOPRAMIDE [Concomitant]
  6. PIRITON [Concomitant]
  7. SERETIDE [Concomitant]
  8. ZOPICLONE [Concomitant]

REACTIONS (2)
  - Blood creatinine increased [Unknown]
  - Blood uric acid increased [Unknown]
